FAERS Safety Report 7727786-2 (Version None)
Quarter: 2011Q3

REPORT INFORMATION
  Report Type: 
  Country: None (occurrence: None)
  Receive Date: 20110905
  Receipt Date: 20110829
  Transmission Date: 20111222
  Serious: Yes (Other)
  Sender: FDA-Public Use
  Company Number: IT-BRISTOL-MYERS SQUIBB COMPANY-16015414

PATIENT
  Age: 28 Year
  Sex: Female

DRUGS (3)
  1. PACLITAXEL [Suspect]
     Indication: BREAST CANCER
     Dosage: INTERRUPTED ON 10JAN2011. INFUSION
     Route: 042
     Dates: start: 20101005
  2. KYTRIL [Concomitant]
  3. BEVACIZUMAB [Concomitant]

REACTIONS (1)
  - CHEST PAIN [None]
